FAERS Safety Report 5593759-1 (Version None)
Quarter: 2007Q4

REPORT INFORMATION
  Report Type: 
  Country: None (occurrence: None)
  Receive Date: 20071218
  Receipt Date: 20070917
  Transmission Date: 20080405
  Serious: Yes (Hospitalization, Other)
  Sender: FDA-Public Use
  Company Number: 2006146916

PATIENT
  Age: 62 Year
  Sex: Female
  Weight: 63.1 kg

DRUGS (3)
  1. BEXTRA [Suspect]
     Indication: BACK PAIN
     Dosage: (1 D)
     Dates: start: 20011101, end: 20021101
  2. VIOXX [Suspect]
     Indication: BACK PAIN
     Dosage: 25 MG (25 MG,1 IN 1 D)
     Dates: start: 20021101
  3. PREMARIN [Concomitant]

REACTIONS (1)
  - MYOCARDIAL INFARCTION [None]
